FAERS Safety Report 6394627-8 (Version None)
Quarter: 2009Q4

REPORT INFORMATION
  Report Type: 
  Country: None (occurrence: None)
  Receive Date: 20091009
  Receipt Date: 20091001
  Transmission Date: 20100525
  Serious: Yes (Hospitalization)
  Sender: FDA-Public Use
  Company Number: SE-ROCHE-659944

PATIENT
  Sex: Male

DRUGS (2)
  1. CAPECITABINE [Suspect]
     Dosage: DAY 1-14 EVERY 3 WEEKS . THERAPY DETAILS ADDED AS PER STUDY PROTOCOL.DATE OF LAST DOSE:26 AUG 2008
     Route: 048
     Dates: start: 20080729
  2. TAXOTERE [Suspect]
     Dosage: FORM: INFUSION, ON CYCLE DAY 1, 8 AND 15 OR CYCLE DAY 1 AND 8 IN AN ALTERNATING 3 WEEKLY SCHEDULE.
     Route: 042

REACTIONS (3)
  - ARTERIAL THROMBOSIS [None]
  - INFECTION [None]
  - PERIPHERAL ISCHAEMIA [None]
